FAERS Safety Report 8817832 (Version 2)
Quarter: 2012Q4

REPORT INFORMATION
  Report Type: 
  Country: IT (occurrence: IT)
  Receive Date: 20121004
  Receipt Date: 20121018
  Transmission Date: 20130627
  Serious: Yes (Life-Threatening, Other)
  Sender: FDA-Public Use
  Company Number: IT-ROCHE-1141001

PATIENT
  Age: 58 Year
  Sex: Male

DRUGS (3)
  1. ACTILYSE [Suspect]
     Indication: ISCHAEMIC STROKE
     Dosage: INDICATION:LEFT-SIDED MIDDLE CREBRAL ARTERY ISCHEMIC STROKE
     Route: 042
  2. ACETYLSALICYLIC ACID [Concomitant]
     Dosage: low dose
     Route: 065
  3. BETA BLOCKING AGENTS [Concomitant]

REACTIONS (6)
  - Brain oedema [Unknown]
  - Cerebral infarction [Unknown]
  - Coma [Recovered/Resolved]
  - Pyrexia [Unknown]
  - Haemorrhagic transformation stroke [Unknown]
  - Brain midline shift [Unknown]
